FAERS Safety Report 4831455-6 (Version None)
Quarter: 2005Q4

REPORT INFORMATION
  Report Type: 
  Country: None (occurrence: None)
  Receive Date: 20051118
  Receipt Date: 20051108
  Transmission Date: 20060501
  Serious: Yes (Hospitalization, Other)
  Sender: FDA-Public Use
  Company Number: ES-ABBOTT-05P-144-0316802-00

PATIENT
  Age: 38 Year
  Sex: Male

DRUGS (6)
  1. CYCLOSPORINE [Suspect]
     Indication: APLASIA PURE RED CELL
  2. CYCLOSPORINE [Suspect]
  3. CYCLOSPORINE [Suspect]
  4. CYCLOSPORINE [Suspect]
  5. CIPROFLOXACIN [Interacting]
     Indication: PYREXIA
     Route: 042
  6. LEVOFLOXACIN [Concomitant]
     Indication: PYREXIA
     Route: 042

REACTIONS (3)
  - DRUG INTERACTION [None]
  - DRUG LEVEL INCREASED [None]
  - PYREXIA [None]
